FAERS Safety Report 12053070 (Version 1)
Quarter: 2016Q1

REPORT INFORMATION
  Report Type: Spontaneous
  Country: US (occurrence: US)
  Receive Date: 20160209
  Receipt Date: 20160209
  Transmission Date: 20160526
  Serious: No
  Sender: FDA-Public Use
  Company Number: US-ENDO PHARMACEUTICALS INC.-FORT20150025

PATIENT
  Age: 34 Year
  Sex: Male

DRUGS (2)
  1. FORTESTA [Suspect]
     Active Substance: TESTOSTERONE
     Indication: HYPOGONADISM
     Route: 061
     Dates: end: 201501
  2. FORTESTA [Suspect]
     Active Substance: TESTOSTERONE
     Route: 065
     Dates: start: 201501

REACTIONS (3)
  - Withdrawal syndrome [Not Recovered/Not Resolved]
  - Drug dose omission [Recovered/Resolved]
  - Influenza [Recovered/Resolved]

NARRATIVE: CASE EVENT DATE: 201501
